FAERS Safety Report 17064758 (Version 1)
Quarter: 2019Q4

REPORT INFORMATION
  Report Type: Spontaneous
  Country: US (occurrence: US)
  Receive Date: 20191122
  Receipt Date: 20191122
  Transmission Date: 20200122
  Serious: No
  Sender: FDA-Public Use
  Company Number: US-ASTRAZENECA-2019SF52597

PATIENT
  Weight: 53.5 kg

DRUGS (4)
  1. LOKELMA [Suspect]
     Active Substance: SODIUM ZIRCONIUM CYCLOSILICATE
     Indication: CHRONIC KIDNEY DISEASE
     Dosage: 10.0G UNKNOWN
     Route: 048
     Dates: start: 201909
  2. LOKELMA [Suspect]
     Active Substance: SODIUM ZIRCONIUM CYCLOSILICATE
     Indication: CHRONIC KIDNEY DISEASE
     Dosage: UNKNOWN
     Route: 048
  3. VITAMIN SUPPLEMENTS [Concomitant]
     Active Substance: VITAMINS
  4. PROCRIT [Concomitant]
     Active Substance: ERYTHROPOIETIN
     Indication: ANAEMIA

REACTIONS (4)
  - Abdominal discomfort [Unknown]
  - Blood potassium abnormal [Unknown]
  - Vomiting [Unknown]
  - Pulse abnormal [Unknown]
